FAERS Safety Report 20932105 (Version 1)
Quarter: 2022Q2

REPORT INFORMATION
  Report Type: Other
  Country: US (occurrence: None)
  Receive Date: 20220608
  Receipt Date: 20220608
  Transmission Date: 20220721
  Serious: No
  Sender: FDA-Public Use
  Company Number: US-ROCHE-2811699

PATIENT
  Age: 59 Year
  Sex: Male

DRUGS (7)
  1. TOCILIZUMAB [Suspect]
     Active Substance: TOCILIZUMAB
     Indication: COVID-19 pneumonia
     Route: 042
  2. LEVOFLOXACIN [Concomitant]
     Active Substance: LEVOFLOXACIN
     Route: 048
  3. ATORVASTATIN [Concomitant]
     Active Substance: ATORVASTATIN
  4. FAMOTIDINE [Concomitant]
     Active Substance: FAMOTIDINE
  5. FOLIC ACID [Concomitant]
     Active Substance: FOLIC ACID
  6. THIAMINE [Concomitant]
     Active Substance: THIAMINE
  7. APIXABAN [Concomitant]
     Active Substance: APIXABAN

REACTIONS (2)
  - Off label use [Unknown]
  - No adverse event [Unknown]
